FAERS Safety Report 6313824-0 (Version None)
Quarter: 2009Q3

REPORT INFORMATION
  Report Type: 
  Country: None (occurrence: None)
  Receive Date: 20090818
  Receipt Date: 20090804
  Transmission Date: 20100115
  Serious: Yes (Other)
  Sender: FDA-Public Use
  Company Number: GB-MYLANLABS-2009S1013846

PATIENT
  Age: 8 Year
  Sex: Male

DRUGS (1)
  1. IBUPROFEN [Suspect]
     Indication: VIRAEMIA

REACTIONS (2)
  - RENAL PAPILLARY NECROSIS [None]
  - URETERIC OBSTRUCTION [None]
